FAERS Safety Report 8191688-0 (Version None)
Quarter: 2012Q1

REPORT INFORMATION
  Report Type: 
  Country: None (occurrence: None)
  Receive Date: 20120307
  Receipt Date: 20110715
  Transmission Date: 20120608
  Serious: No
  Sender: FDA-Public Use
  Company Number: US-ASTRAZENECA-2011SE30004

PATIENT
  Age: 66 Year
  Sex: Female
  Weight: 40.4 kg

DRUGS (3)
  1. ESTRATEST H.S. [Concomitant]
     Dosage: 0.625-1.25, 1 TABLET ONCE A DAY
     Route: 048
  2. NASONEX [Concomitant]
     Dosage: 50 MCG 2 SPRAYS EVERY DAY IN EACH NOSTRIL
     Route: 045
  3. ZOMIG [Suspect]
     Indication: MIGRAINE
     Dosage: 1 TABLET (2.5MG) ONCE, IF HEADACHE RETURNS, MAY BE REPEATED IN 2 HOURS
     Route: 048

REACTIONS (4)
  - RHINITIS ALLERGIC [None]
  - CERUMEN IMPACTION [None]
  - DRUG DOSE OMISSION [None]
  - HEADACHE [None]
